FAERS Safety Report 9771184 (Version 3)
Quarter: 2014Q2

REPORT INFORMATION
  Report Type: Spontaneous
  Country: US (occurrence: US)
  Receive Date: 20131218
  Receipt Date: 20140429
  Transmission Date: 20141212
  Serious: Yes (Hospitalization)
  Sender: FDA-Public Use
  Company Number: US-B.I. PHARMACEUTICALS,INC./RIDGEFIELD-2013-BI-41780BP

PATIENT
  Sex: Male
  Weight: 56.7 kg

DRUGS (17)
  1. PRADAXA [Suspect]
     Indication: ATRIAL FIBRILLATION
     Dosage: 300 MG
     Route: 065
     Dates: start: 20111202, end: 20120108
  2. BABY ASPIRIN [Concomitant]
     Dosage: 81 MG
     Route: 065
  3. COREG [Concomitant]
     Dosage: 50 MG
     Route: 065
  4. IMDUR [Concomitant]
     Dosage: 30 MG
     Route: 065
     Dates: start: 200809
  5. KCL [Concomitant]
     Dosage: 10 MEQ
     Route: 065
  6. COLACE [Concomitant]
     Dosage: 2000 MG
     Route: 065
  7. DIGOXIN [Concomitant]
     Dosage: 0.12 MG
     Route: 065
     Dates: start: 200809
  8. LISINOPRIL [Concomitant]
     Dosage: 40 MG
     Route: 065
     Dates: start: 2007
  9. TYLENOL [Concomitant]
     Route: 065
  10. BISACODYL [Concomitant]
     Route: 065
  11. NORVASC [Concomitant]
     Dosage: 10 MG
     Route: 065
     Dates: start: 201008, end: 201302
  12. ZANTAC [Concomitant]
     Dosage: 150 MG
     Route: 065
     Dates: start: 201008, end: 201302
  13. LASIX [Concomitant]
     Dosage: 20 MG
     Route: 065
  14. CRESTOR [Concomitant]
     Dosage: 20 MG
     Route: 065
     Dates: start: 201107
  15. CO Q10 [Concomitant]
     Route: 065
  16. B12 [Concomitant]
     Route: 065
  17. MENS VITAMIN [Concomitant]
     Route: 065

REACTIONS (4)
  - Gastrointestinal haemorrhage [Recovered/Resolved]
  - Haemorrhagic anaemia [Recovered/Resolved]
  - Renal failure acute [Unknown]
  - Ulcer haemorrhage [Unknown]
